FAERS Safety Report 9158273 (Version 2)
Quarter: 2013Q3

REPORT INFORMATION
  Report Type: Spontaneous
  Country: FR (occurrence: FR)
  Receive Date: 20130312
  Receipt Date: 20130802
  Transmission Date: 20140515
  Serious: Yes (Hospitalization)
  Sender: FDA-Public Use
  Company Number: FR-ROCHE-1200599

PATIENT
  Age: 46 Year
  Sex: Male

DRUGS (2)
  1. PEGASYS [Suspect]
     Indication: PRODUCT USED FOR UNKNOWN INDICATION
     Route: 058
     Dates: start: 20070403, end: 20080826
  2. REBETOL [Suspect]
     Indication: PRODUCT USED FOR UNKNOWN INDICATION
     Route: 048
     Dates: start: 20070403, end: 20080826

REACTIONS (1)
  - Pulmonary arterial hypertension [Not Recovered/Not Resolved]
